FAERS Safety Report 6628316-9 (Version None)
Quarter: 2010Q1

REPORT INFORMATION
  Report Type: 
  Country: None (occurrence: None)
  Receive Date: 20100311
  Receipt Date: 20100305
  Transmission Date: 20100710
  Serious: Yes (Hospitalization, Other)
  Sender: FDA-Public Use
  Company Number: US-ROXANE LABORATORIES, INC.-2010-RO-00238RO

PATIENT
  Age: 61 Year
  Sex: Male

DRUGS (9)
  1. METHADONE HYDROCHLORIDE [Suspect]
     Indication: BACK PAIN
  2. HYDROMORPHONE HCL [Suspect]
     Indication: BACK PAIN
  3. VENLAFAXINE [Suspect]
     Indication: DEPRESSION
     Dosage: 200 MG
  4. VENLAFAXINE [Suspect]
     Dosage: 150 MG
  5. CIPROFLOXACIN [Suspect]
  6. OXYCODONE [Suspect]
     Indication: BACK PAIN
  7. MORPHINE [Concomitant]
     Indication: BACK PAIN
  8. CYPROHEPTADINE HCL [Concomitant]
     Dosage: 16 MG
     Route: 048
  9. METOCLOPRAMIDE [Concomitant]

REACTIONS (3)
  - COMPUTERISED TOMOGRAM ABNORMAL [None]
  - FALL [None]
  - SEROTONIN SYNDROME [None]
